FAERS Safety Report 7657408-0 (Version None)
Quarter: 2011Q3

REPORT INFORMATION
  Report Type: 
  Country: None (occurrence: None)
  Receive Date: 20110804
  Receipt Date: 20110802
  Transmission Date: 20111222
  Serious: Yes (Other)
  Sender: FDA-Public Use
  Company Number: AU-PFIZER INC-2011177957

PATIENT

DRUGS (1)
  1. TRAZODONE HCL [Suspect]

REACTIONS (1)
  - CARDIAC FAILURE [None]
